FAERS Safety Report 8699498 (Version 10)
Quarter: 2012Q4

REPORT INFORMATION
  Report Type: Report from Study
  Country: FR (occurrence: FR)
  Receive Date: 20120802
  Receipt Date: 20121227
  Transmission Date: 20130627
  Serious: Yes (Hospitalization)
  Sender: FDA-Public Use
  Company Number: FR-BRISTOL-MYERS SQUIBB COMPANY-16819476

PATIENT
  Age: 62 Year
  Sex: Male

DRUGS (11)
  1. IPILIMUMAB [Suspect]
     Indication: MALIGNANT MELANOMA
     Dosage: 1DF:3mg/kg or 6mg/kg
     Route: 042
     Dates: start: 20120615, end: 20120727
  2. PYOSTACINE [Concomitant]
     Dates: start: 20120727, end: 20120730
  3. CALCIUM CARBONATE [Concomitant]
     Route: 048
     Dates: start: 2012
  4. PAROXETINE [Concomitant]
     Dates: start: 201201
  5. PARACETAMOL [Concomitant]
     Route: 048
     Dates: start: 20120722
  6. PRISTINAMYCIN [Concomitant]
     Route: 048
     Dates: start: 20120707
  7. POTASSIUM CHLORIDE [Concomitant]
     Dosage: 1 caps
     Route: 048
     Dates: start: 2012
  8. OMEPRAZOLE [Concomitant]
     Route: 048
     Dates: start: 20120805
  9. METHYLPREDNISOLONE [Concomitant]
     Route: 048
     Dates: start: 201208
  10. VALACYCLOVIR [Concomitant]
     Route: 048
  11. TETRAZEPAM [Concomitant]
     Route: 048
     Dates: start: 20120810

REACTIONS (2)
  - Bicytopenia [Recovered/Resolved]
  - Febrile neutropenia [Recovered/Resolved]
